FAERS Safety Report 7218485-4 (Version None)
Quarter: 2011Q1

REPORT INFORMATION
  Report Type: 
  Country: None (occurrence: None)
  Receive Date: 20110110
  Receipt Date: 20110105
  Transmission Date: 20110831
  Serious: Yes (Other)
  Sender: FDA-Public Use
  Company Number: US-AMGEN-TCS415595

PATIENT

DRUGS (3)
  1. ENBREL [Suspect]
     Indication: RHEUMATOID ARTHRITIS
     Dosage: 50 MG, QWK
     Route: 058
     Dates: start: 20100513
  2. METHOTREXATE [Concomitant]
     Dosage: UNK
  3. PREDNISONE [Concomitant]
     Dosage: 05 MG, QD

REACTIONS (14)
  - HYPERTENSION [None]
  - ABDOMINAL PAIN UPPER [None]
  - ASTHMA [None]
  - BRONCHITIS [None]
  - BRONCHIAL HYPERREACTIVITY [None]
  - DRUG HYPERSENSITIVITY [None]
  - OROPHARYNGEAL PAIN [None]
  - OSTEOPENIA [None]
  - SINUSITIS [None]
  - INJECTION SITE PRURITUS [None]
  - FATIGUE [None]
  - INJECTION SITE RASH [None]
  - INJECTION SITE ERYTHEMA [None]
  - INJECTION SITE REACTION [None]
